FAERS Safety Report 26126987 (Version 1)
Quarter: 2025Q4

REPORT INFORMATION
  Report Type: Spontaneous
  Country: EU (occurrence: EU)
  Receive Date: 20251205
  Receipt Date: 20251205
  Transmission Date: 20260117
  Serious: Yes (Other)
  Sender: ESPERION THERAPEUTICS
  Company Number: EU-DAIICHI SANKYO EUROPE GMBH-DS-2025-180023-IT

PATIENT

DRUGS (2)
  1. BEMPEDOIC ACID [Suspect]
     Active Substance: BEMPEDOIC ACID
     Indication: Dyslipidaemia
     Dosage: 180 MG, FOR A YEAR
     Route: 065
  2. BEMPEDOIC ACID [Suspect]
     Active Substance: BEMPEDOIC ACID
     Indication: Reaction to excipient

REACTIONS (2)
  - Neutropenia [Unknown]
  - White blood cell count decreased [Unknown]
